FAERS Safety Report 14008056 (Version 1)
Quarter: 2017Q3

REPORT INFORMATION
  Report Type: Spontaneous
  Country: US (occurrence: US)
  Receive Date: 20170925
  Receipt Date: 20170925
  Transmission Date: 20171128
  Serious: No
  Sender: FDA-Public Use
  Company Number: US-PFIZER INC-2017411645

PATIENT
  Age: 8 Year
  Sex: Female

DRUGS (2)
  1. CULTURELLE [Concomitant]
     Active Substance: LACTOBACILLUS RHAMNOSUS
     Indication: ABDOMINAL PAIN UPPER
     Dosage: UNK
  2. ADVIL [Suspect]
     Active Substance: IBUPROFEN
     Indication: MIGRAINE WITH AURA
     Dosage: 1 DF, UNK
     Route: 048
     Dates: start: 20170916

REACTIONS (8)
  - Hypersomnia [Unknown]
  - Somnolence [Unknown]
  - Pain [Unknown]
  - Intentional product misuse [Unknown]
  - Sedation [Recovered/Resolved]
  - Stupor [Recovered/Resolved]
  - Drug ineffective for unapproved indication [Unknown]
  - Drug administered to patient of inappropriate age [Unknown]

NARRATIVE: CASE EVENT DATE: 20170916
